FAERS Safety Report 4289227-X (Version None)
Quarter: 2004Q1

REPORT INFORMATION
  Report Type: 
  Country: None (occurrence: None)
  Receive Date: 20040206
  Receipt Date: 20040128
  Transmission Date: 20041129
  Serious: Yes (Hospitalization)
  Sender: FDA-Public Use
  Company Number: US-JNJFOC-20031201652

PATIENT
  Age: 5 Year
  Sex: Male
  Weight: 23.8 kg

DRUGS (2)
  1. TOPAMAX [Suspect]
     Indication: CONVULSION
     Dosage: 87.5 MG, IN 1 DAY, ORAL
     Route: 048
  2. RITALIN [Concomitant]

REACTIONS (18)
  - ABNORMAL BEHAVIOUR [None]
  - AGITATION [None]
  - BLOOD BICARBONATE DECREASED [None]
  - DIARRHOEA [None]
  - DISTURBANCE IN ATTENTION [None]
  - DRUG LEVEL BELOW THERAPEUTIC [None]
  - GASTROENTERITIS VIRAL [None]
  - GRAND MAL CONVULSION [None]
  - INFLUENZA [None]
  - MARKEDLY REDUCED DIETARY INTAKE [None]
  - MUSCULOSKELETAL STIFFNESS [None]
  - PSYCHOTIC DISORDER [None]
  - PYREXIA [None]
  - RESPIRATORY DEPRESSION [None]
  - RHINORRHOEA [None]
  - SKIN DISCOLOURATION [None]
  - UPPER RESPIRATORY TRACT INFECTION [None]
  - VOMITING [None]
